FAERS Safety Report 9023132 (Version 1)
Quarter: 2013Q1

REPORT INFORMATION
  Report Type: Spontaneous
  Country: US (occurrence: US)
  Receive Date: 20130120
  Receipt Date: 20130120
  Transmission Date: 20140127
  Serious: No
  Sender: FDA-Public Use
  Company Number: US-ALLERGAN-1214913US

PATIENT
  Age: 52 None
  Sex: Female

DRUGS (1)
  1. BOTOX COSMETIC [Suspect]
     Indication: SKIN WRINKLING
     Dosage: 4 UNITS, SINGLE
     Route: 030
     Dates: start: 20121016, end: 20121016

REACTIONS (7)
  - Memory impairment [Unknown]
  - Paraesthesia oral [Unknown]
  - Paraesthesia [Unknown]
  - Feeling hot [Unknown]
  - Hyperhidrosis [Unknown]
  - Crying [Unknown]
  - Stress [Unknown]
